FAERS Safety Report 16985222 (Version 1)
Quarter: 2019Q4

REPORT INFORMATION
  Report Type: Spontaneous
  Country: GB (occurrence: GB)
  Receive Date: 20191101
  Receipt Date: 20191101
  Transmission Date: 20200122
  Serious: Yes (Other)
  Sender: FDA-Public Use
  Company Number: GB-TEVA-2019-GB-1130402

PATIENT
  Age: 57 Year
  Sex: Male
  Weight: 97 kg

DRUGS (12)
  1. CLOPIDOGREL [Concomitant]
     Active Substance: CLOPIDOGREL BISULFATE
     Dates: start: 20190115
  2. AMLODIPINE [Concomitant]
     Active Substance: AMLODIPINE BESYLATE
     Dates: start: 20190115
  3. ATENOLOL. [Concomitant]
     Active Substance: ATENOLOL
     Dosage: EACH MORNING
     Dates: start: 20190115
  4. PARACETAMOL [Concomitant]
     Active Substance: ACETAMINOPHEN
     Dosage: TAKE 1 OR 2 4 TIMES/DAY
     Dates: start: 20190115
  5. LIPITOR [Concomitant]
     Active Substance: ATORVASTATIN CALCIUM
     Dates: start: 20190115, end: 20190807
  6. ATORVASTATIN [Suspect]
     Active Substance: ATORVASTATIN
     Dates: start: 20190807
  7. NAPROXEN. [Concomitant]
     Active Substance: NAPROXEN
     Dates: start: 20190816, end: 20190913
  8. ENALAPRIL [Concomitant]
     Active Substance: ENALAPRIL
     Dates: start: 20190115
  9. PRAVASTATIN. [Concomitant]
     Active Substance: PRAVASTATIN
     Dosage: AT NIGHT
     Dates: start: 20190808, end: 20190905
  10. BENDROFLUMETHIAZIDE [Concomitant]
     Active Substance: BENDROFLUMETHIAZIDE
     Dosage: EACH MORNING
     Dates: start: 20190115
  11. CALCI-D [Concomitant]
     Active Substance: CALCIUM CARBONATE\CHOLECALCIFEROL
     Dates: start: 20190115
  12. LANSOPRAZOLE. [Concomitant]
     Active Substance: LANSOPRAZOLE
     Dates: start: 20190115

REACTIONS (1)
  - Swelling face [Recovered/Resolved]

NARRATIVE: CASE EVENT DATE: 20191004
